FAERS Safety Report 8601363-3 (Version None)
Quarter: 2012Q3

REPORT INFORMATION
  Report Type: 
  Country: None (occurrence: None)
  Receive Date: 20120817
  Receipt Date: 20120810
  Transmission Date: 20120928
  Serious: Yes (Death, Hospitalization)
  Sender: FDA-Public Use
  Company Number: DK-BRISTOL-MYERS SQUIBB COMPANY-16753667

PATIENT
  Age: 42 Year
  Sex: Female

DRUGS (15)
  1. MAGNESIUM [Concomitant]
     Route: 048
  2. GABAPENTIN [Concomitant]
     Route: 048
     Dates: start: 20120524, end: 20120711
  3. ACETAMINOPHEN [Concomitant]
     Route: 048
     Dates: end: 20120711
  4. IPILIMUMAB [Suspect]
     Indication: METASTATIC MALIGNANT MELANOMA
     Route: 042
     Dates: start: 20120524
  5. SOLU-MEDROL [Concomitant]
     Route: 042
     Dates: start: 20120630, end: 20120701
  6. ONDANSETRON [Concomitant]
     Route: 048
  7. AMITRIPTYLINE HCL [Concomitant]
     Route: 048
     Dates: start: 20120523, end: 20120606
  8. OXYCONTIN [Concomitant]
     Dosage: UNK-22MAY12 23MAY12-ONG 22-MAY12-11JUL12 60MG
     Route: 048
  9. VOGALENE [Concomitant]
     Route: 048
     Dates: start: 20120521
  10. POLYETHYLENE GLYCOL [Concomitant]
     Route: 048
     Dates: start: 20120521
  11. IMODIUM [Concomitant]
     Route: 048
     Dates: start: 20120608
  12. LAXOBERAL [Concomitant]
     Route: 048
  13. PREDNISOLONE [Concomitant]
     Dosage: 50 MG OD 06JUN12 TO 13JUN12; 25 MG 14JU12 TO 28JUN12 100 MG 02JUL TO 03JUL12
     Route: 048
     Dates: start: 20120606, end: 20120628
  14. METRONIDAZOLE [Concomitant]
     Dosage: THEN CHANGED TO ORAL 1500 MG FROM 05JUL - 07JUL12.
     Route: 042
     Dates: start: 20120629, end: 20120704
  15. MOVIPREP [Concomitant]
     Dates: start: 20120521

REACTIONS (3)
  - HEADACHE [None]
  - LUNG INFECTION [None]
  - METASTASES TO CENTRAL NERVOUS SYSTEM [None]
